FAERS Safety Report 25049735 (Version 1)
Quarter: 2025Q1

REPORT INFORMATION
  Report Type: Spontaneous
  Country: US (occurrence: None)
  Receive Date: 20250306
  Receipt Date: 20250306
  Transmission Date: 20250408
  Serious: No
  Sender: FDA-CTU
  Company Number: None

PATIENT
  Age: 63 Year
  Sex: Male

DRUGS (1)
  1. AUGTYRO [Suspect]
     Active Substance: REPOTRECTINIB
     Dosage: FREQUENCY : TWICE A DAY;?
     Route: 048
     Dates: start: 20240926

REACTIONS (4)
  - Paraesthesia [None]
  - Fatigue [None]
  - Grip strength decreased [None]
  - Taste disorder [None]
